FAERS Safety Report 21258526 (Version 2)
Quarter: 2022Q4

REPORT INFORMATION
  Report Type: Spontaneous
  Country: US (occurrence: US)
  Receive Date: 20220826
  Receipt Date: 20221007
  Transmission Date: 20230112
  Serious: No
  Sender: FDA-Public Use
  Company Number: US-PFIZER INC-PV202200050939

PATIENT
  Age: 60 Year
  Sex: Male

DRUGS (2)
  1. XELJANZ XR [Suspect]
     Active Substance: TOFACITINIB CITRATE
     Indication: Rheumatoid arthritis
     Dosage: 11 MG, 1X/DAY
     Route: 048
     Dates: start: 202208
  2. XELJANZ XR [Suspect]
     Active Substance: TOFACITINIB CITRATE
     Dosage: 11 MG, DAILY
     Route: 048
     Dates: start: 202208

REACTIONS (6)
  - Intentional product misuse [Unknown]
  - Fatigue [Unknown]
  - Hyperhidrosis [Unknown]
  - Myalgia [Not Recovered/Not Resolved]
  - Memory impairment [Unknown]
  - Pain [Unknown]

NARRATIVE: CASE EVENT DATE: 20220101
